FAERS Safety Report 4567374-2 (Version None)
Quarter: 2005Q1

REPORT INFORMATION
  Report Type: 
  Country: None (occurrence: None)
  Receive Date: 20050127
  Receipt Date: 20050121
  Transmission Date: 20050727
  Serious: Yes (Death)
  Sender: FDA-Public Use
  Company Number: TCI2005A00222

PATIENT
  Age: 75 Year
  Sex: Male

DRUGS (6)
  1. PIOGLITAZONE HYDROCHLORIDE (PIOGLITAZONE HYDROCHLORIDE0 [Suspect]
     Indication: DIABETES MELLITUS NON-INSULIN-DEPENDENT
     Dosage: 15 MG (15 MG, 1 D), PER ORAL
     Route: 048
     Dates: start: 20020809, end: 20050101
  2. GLIBENCLAMIDE [Concomitant]
  3. ACETYLSALICYLIC ACID SRT [Concomitant]
  4. VALSARTAN [Concomitant]
  5. AZOSEMIDE [Concomitant]
  6. TICLOPIDINE HCL [Concomitant]

REACTIONS (1)
  - DEATH [None]
